FAERS Safety Report 9988871 (Version 2)
Quarter: 2014Q1

REPORT INFORMATION
  Report Type: Report from Study
  Country: US (occurrence: US)
  Receive Date: 20140310
  Receipt Date: 20140310
  Transmission Date: 20141002
  Serious: No
  Sender: FDA-Public Use
  Company Number: US-ABBVIE-13P-163-1107214-00

PATIENT
  Age: 69 Year
  Sex: Female

DRUGS (15)
  1. HUMIRA [Suspect]
     Indication: RHEUMATOID ARTHRITIS
     Dates: start: 201304
  2. ECOTRIN [Concomitant]
     Indication: CARDIOVASCULAR DISORDER
  3. FUROSEMIDE [Concomitant]
     Indication: DIURETIC THERAPY
  4. PLAVIX [Concomitant]
     Indication: CARDIOVASCULAR DISORDER
  5. PANTOPRAZOLE [Concomitant]
     Indication: GASTROOESOPHAGEAL REFLUX DISEASE
     Dosage: DAILY
  6. LISINOPRIL [Concomitant]
     Indication: HYPERTENSION
  7. METOPROLOL [Concomitant]
     Indication: HYPERTENSION
  8. SYMBICORT [Concomitant]
     Indication: DYSPNOEA
  9. VENTOLIN HFA [Concomitant]
     Indication: DYSPNOEA
  10. ATORVASTATIN [Concomitant]
     Indication: HYPERCHOLESTEROLAEMIA
  11. HYDROCODONE [Concomitant]
     Indication: BACK PAIN
     Dosage: 5/500 MG EVERY 4-5 HOURS
  12. NOVOLOG [Concomitant]
     Indication: PRODUCT USED FOR UNKNOWN INDICATION
     Dosage: 30 UNITS 2 TIMES PER DAY AND 20 UNITS AT BEDTIME
  13. LEVEMIR [Concomitant]
     Indication: DIABETES MELLITUS
  14. AMBIEN [Concomitant]
     Indication: INSOMNIA
     Dosage: AT BEDTIME
  15. PREDNISONE [Concomitant]
     Indication: PRODUCT USED FOR UNKNOWN INDICATION

REACTIONS (5)
  - Vitamin D decreased [Recovering/Resolving]
  - Gout [Recovering/Resolving]
  - Injection site erythema [Recovered/Resolved]
  - Injection site swelling [Recovered/Resolved]
  - Injection site pruritus [Recovered/Resolved]
